FAERS Safety Report 14264091 (Version 1)
Quarter: 2017Q4

REPORT INFORMATION
  Report Type: Spontaneous
  Country: US (occurrence: US)
  Receive Date: 20171208
  Receipt Date: 20171208
  Transmission Date: 20180321
  Serious: Yes (Other)
  Sender: FDA-Public Use
  Company Number: US-BIOGEN-2017BI00493098

PATIENT
  Sex: Female

DRUGS (1)
  1. TECFIDERA [Suspect]
     Active Substance: DIMETHYL FUMARATE
     Indication: PATERNAL EXPOSURE TIMING UNSPECIFIED
     Route: 064
     Dates: start: 20140703

REACTIONS (2)
  - Autism spectrum disorder [Unknown]
  - Exposure via father [Recovered/Resolved]
